FAERS Safety Report 15271172 (Version 1)
Quarter: 2018Q4

REPORT INFORMATION
  Report Type: Spontaneous
  Country: IT (occurrence: IT)
  Receive Date: 20180813
  Receipt Date: 20180813
  Transmission Date: 20190204
  Serious: Yes (Hospitalization)
  Sender: FDA-Public Use
  Company Number: IT-PFIZER INC-2018324254

PATIENT
  Age: 29 Year
  Sex: Female

DRUGS (2)
  1. TAVOR (LORAZEPAM) [Suspect]
     Active Substance: LORAZEPAM
     Dosage: 1 DF, UNK
     Route: 048
     Dates: start: 20180618, end: 20180618
  2. GARDENALE /00023201/ [Suspect]
     Active Substance: PHENOBARBITAL
     Dosage: 5 DF, UNK
     Route: 048
     Dates: start: 20180618, end: 20180618

REACTIONS (3)
  - Drug abuse [Recovered/Resolved]
  - Suicide attempt [Recovered/Resolved]
  - Sopor [Recovered/Resolved]

NARRATIVE: CASE EVENT DATE: 20180618
